FAERS Safety Report 10755096 (Version 1)
Quarter: 2015Q1

REPORT INFORMATION
  Report Type: Spontaneous
  Country: FR (occurrence: FR)
  Receive Date: 20150202
  Receipt Date: 20150202
  Transmission Date: 20150721
  Serious: Yes (Other)
  Sender: FDA-Public Use
  Company Number: FR-TEVA-537021ISR

PATIENT
  Age: 40 Year
  Sex: Male

DRUGS (4)
  1. FAMPYRA [Concomitant]
     Active Substance: DALFAMPRIDINE
     Dates: start: 201404
  2. NEURONTIN [Concomitant]
     Active Substance: GABAPENTIN
     Dates: start: 200610
  3. COPAXONE [Suspect]
     Active Substance: GLATIRAMER ACETATE
     Dosage: 20 MILLIGRAM DAILY; COPAXONE 20 MG/ML
     Route: 058
     Dates: start: 20141016
  4. AVLOCARDYL [Concomitant]
     Active Substance: PROPRANOLOL HYDROCHLORIDE
     Dates: start: 201206

REACTIONS (4)
  - Loss of consciousness [Recovered/Resolved]
  - Injection site pain [Recovered/Resolved]
  - Hot flush [Recovered/Resolved]
  - Choking [Recovered/Resolved]

NARRATIVE: CASE EVENT DATE: 20141107
